FAERS Safety Report 18441210 (Version 3)
Quarter: 2024Q4

REPORT INFORMATION
  Report Type: Spontaneous
  Country: US (occurrence: US)
  Receive Date: 20201029
  Receipt Date: 20241118
  Transmission Date: 20250115
  Serious: No
  Sender: PFIZER
  Company Number: US-PFIZER INC-2020417946

PATIENT
  Age: 64 Year
  Sex: Female

DRUGS (2)
  1. IBRANCE [Suspect]
     Active Substance: PALBOCICLIB
     Indication: Carcinoid tumour
     Dosage: 125 MG
     Dates: start: 20200901
  2. IBRANCE [Suspect]
     Active Substance: PALBOCICLIB
     Dosage: 100 MG, (TAKE 1 TABLET DAILY FOR 21 DAYS IN THEN 7 DAYS OFF) CYCLIC
     Route: 048

REACTIONS (2)
  - Hypoaesthesia oral [Recovered/Resolved]
  - Nausea [Unknown]
